FAERS Safety Report 6599339-3 (Version None)
Quarter: 2010Q1

REPORT INFORMATION
  Report Type: 
  Country: None (occurrence: None)
  Receive Date: 20100224
  Receipt Date: 20100215
  Transmission Date: 20100710
  Serious: Yes (Hospitalization)
  Sender: FDA-Public Use
  Company Number: US-ASTRAZENECA-2010SE06542

PATIENT
  Age: 50 Year
  Sex: Female
  Weight: 68 kg

DRUGS (1)
  1. CRESTOR [Suspect]
     Indication: BLOOD CHOLESTEROL DECREASED
     Route: 048
     Dates: start: 20091101, end: 20091212

REACTIONS (2)
  - HIP FRACTURE [None]
  - MUSCLE SPASMS [None]
